FAERS Safety Report 21880554 (Version 1)
Quarter: 2023Q1

REPORT INFORMATION
  Report Type: Report from Study
  Country: US (occurrence: US)
  Receive Date: 20230118
  Receipt Date: 20230118
  Transmission Date: 20230417
  Serious: Yes (Other)
  Sender: FDA-Public Use
  Company Number: US-PFIZER INC-202200149861

PATIENT
  Sex: Female

DRUGS (1)
  1. LYRICA [Suspect]
     Active Substance: PREGABALIN
     Indication: Type 2 diabetes mellitus
     Dosage: 75 MILLIGRAM, QID (75 MG, 4X/DAY)
     Route: 048

REACTIONS (5)
  - Sinusitis [Unknown]
  - Cataract [Unknown]
  - Neuralgia [Unknown]
  - Withdrawal syndrome [Unknown]
  - Off label use [Unknown]
